FAERS Safety Report 25241661 (Version 1)
Quarter: 2025Q2

REPORT INFORMATION
  Report Type: Spontaneous
  Country: US (occurrence: US)
  Receive Date: 20250426
  Receipt Date: 20250426
  Transmission Date: 20250716
  Serious: Yes (Hospitalization, Other)
  Sender: IPCA
  Company Number: US-IPCA LABORATORIES LIMITED-IPC-2025-US-001080

PATIENT

DRUGS (1)
  1. ALLOPURINOL [Suspect]
     Active Substance: ALLOPURINOL
     Indication: Product used for unknown indication
     Route: 065

REACTIONS (7)
  - Drug reaction with eosinophilia and systemic symptoms [Recovering/Resolving]
  - Pulmonary embolism [Recovering/Resolving]
  - Gastric perforation [Recovering/Resolving]
  - Pancreatitis necrotising [Recovering/Resolving]
  - Eosinophilia [Recovering/Resolving]
  - Condition aggravated [Recovering/Resolving]
  - Sepsis [Recovering/Resolving]
